FAERS Safety Report 4848315-7 (Version None)
Quarter: 2005Q4

REPORT INFORMATION
  Report Type: 
  Country: None (occurrence: None)
  Receive Date: 20051206
  Receipt Date: 20051201
  Transmission Date: 20060501
  Serious: Yes (Hospitalization)
  Sender: FDA-Public Use
  Company Number: ITWYE197701DEC05

PATIENT
  Age: 44 Year
  Sex: Male

DRUGS (38)
  1. RAPAMUNE [Suspect]
     Indication: PROPHYLAXIS AGAINST TRANSPLANT REJECTION
     Dosage: SEE IMAGE
     Route: 048
     Dates: start: 20051010, end: 20051010
  2. RAPAMUNE [Suspect]
     Indication: PROPHYLAXIS AGAINST TRANSPLANT REJECTION
     Dosage: SEE IMAGE
     Route: 048
     Dates: start: 20051011, end: 20051024
  3. RAPAMUNE [Suspect]
     Indication: PROPHYLAXIS AGAINST TRANSPLANT REJECTION
     Dosage: SEE IMAGE
     Route: 048
     Dates: start: 20051025, end: 20051113
  4. RAPAMUNE [Suspect]
     Indication: PROPHYLAXIS AGAINST TRANSPLANT REJECTION
     Dosage: SEE IMAGE
     Route: 048
     Dates: start: 20051114, end: 20051114
  5. RAPAMUNE [Suspect]
     Indication: PROPHYLAXIS AGAINST TRANSPLANT REJECTION
     Dosage: SEE IMAGE
     Route: 048
     Dates: start: 20051115, end: 20051124
  6. RAPAMUNE [Suspect]
     Indication: PROPHYLAXIS AGAINST TRANSPLANT REJECTION
     Dosage: SEE IMAGE
     Route: 048
     Dates: start: 20051125
  7. CYCLOSPORINE [Suspect]
     Indication: PROPHYLAXIS AGAINST TRANSPLANT REJECTION
     Dosage: SEE IMAGE
     Route: 048
     Dates: start: 20051011, end: 20051011
  8. CYCLOSPORINE [Suspect]
     Indication: PROPHYLAXIS AGAINST TRANSPLANT REJECTION
     Dosage: SEE IMAGE
     Route: 048
     Dates: start: 20051012, end: 20051012
  9. CYCLOSPORINE [Suspect]
     Indication: PROPHYLAXIS AGAINST TRANSPLANT REJECTION
     Dosage: SEE IMAGE
     Route: 048
     Dates: start: 20051013, end: 20051013
  10. CYCLOSPORINE [Suspect]
     Indication: PROPHYLAXIS AGAINST TRANSPLANT REJECTION
     Dosage: SEE IMAGE
     Route: 048
     Dates: start: 20051014, end: 20051014
  11. CYCLOSPORINE [Suspect]
     Indication: PROPHYLAXIS AGAINST TRANSPLANT REJECTION
     Dosage: SEE IMAGE
     Route: 048
     Dates: start: 20051015, end: 20051015
  12. CYCLOSPORINE [Suspect]
     Indication: PROPHYLAXIS AGAINST TRANSPLANT REJECTION
     Dosage: SEE IMAGE
     Route: 048
     Dates: start: 20051016, end: 20051028
  13. CYCLOSPORINE [Suspect]
     Indication: PROPHYLAXIS AGAINST TRANSPLANT REJECTION
     Dosage: SEE IMAGE
     Route: 048
     Dates: start: 20051029, end: 20051113
  14. CYCLOSPORINE [Suspect]
     Indication: PROPHYLAXIS AGAINST TRANSPLANT REJECTION
     Dosage: SEE IMAGE
     Route: 048
     Dates: start: 20051114, end: 20051114
  15. METHYLPREDNISOLONE [Suspect]
     Indication: PROPHYLAXIS AGAINST TRANSPLANT REJECTION
     Dosage: SEE IMAGE
     Route: 042
     Dates: start: 20051010, end: 20051010
  16. METHYLPREDNISOLONE [Suspect]
     Indication: PROPHYLAXIS AGAINST TRANSPLANT REJECTION
     Dosage: SEE IMAGE
     Route: 042
     Dates: start: 20051011, end: 20051011
  17. METHYLPREDNISOLONE [Suspect]
     Indication: PROPHYLAXIS AGAINST TRANSPLANT REJECTION
     Dosage: SEE IMAGE
     Route: 042
     Dates: start: 20051012, end: 20051012
  18. PREDNISONE [Suspect]
     Indication: PROPHYLAXIS AGAINST TRANSPLANT REJECTION
     Dosage: SEE IMAGE
     Route: 048
     Dates: start: 20051013, end: 20051024
  19. PREDNISONE [Suspect]
     Indication: PROPHYLAXIS AGAINST TRANSPLANT REJECTION
     Dosage: SEE IMAGE
     Route: 048
     Dates: start: 20051025, end: 20051107
  20. PREDNISONE [Suspect]
     Indication: PROPHYLAXIS AGAINST TRANSPLANT REJECTION
     Dosage: SEE IMAGE
     Route: 048
     Dates: start: 20051108, end: 20051121
  21. PREDNISONE [Suspect]
     Indication: PROPHYLAXIS AGAINST TRANSPLANT REJECTION
     Dosage: SEE IMAGE
     Route: 048
     Dates: start: 20051122
  22. SIMULECT (BASILIXIMAB, , 0) [Suspect]
     Indication: PROPHYLAXIS AGAINST TRANSPLANT REJECTION
     Dosage: SEE IMAGE
     Route: 042
     Dates: start: 20051010, end: 20051010
  23. SIMULECT (BASILIXIMAB, , 0) [Suspect]
     Indication: PROPHYLAXIS AGAINST TRANSPLANT REJECTION
     Dosage: SEE IMAGE
     Route: 042
     Dates: start: 20051014, end: 20051014
  24. RANITIDINE [Concomitant]
  25. CEFOTAXIME SODIUM [Concomitant]
  26. DOPAMINE HCL [Concomitant]
  27. FUROSEMIDE [Concomitant]
  28. MORPHINE [Concomitant]
  29. ENOXAPARIN SODIUM [Concomitant]
  30. NISTATIN (NYSTATIN) [Concomitant]
  31. SULFAMETHOXAZOLE + TRIMETHOPRIM [Concomitant]
  32. ALLOPURINOL [Concomitant]
  33. AMLODIPINE [Concomitant]
  34. ANACID (ALGELDRATE/MAGNESIUM HYDROXIDE) [Concomitant]
  35. BROTIZOLAM (BROTIZOLAM) [Concomitant]
  36. FLUVASTATIN (FLUVASTATIN) [Concomitant]
  37. ATORVASTATIN CALCIUM [Concomitant]
  38. CARVEDILOL [Concomitant]

REACTIONS (1)
  - KIDNEY TRANSPLANT REJECTION [None]
